FAERS Safety Report 9403507 (Version 1)
Quarter: 2013Q3

REPORT INFORMATION
  Report Type: Spontaneous
  Country: IT (occurrence: IT)
  Receive Date: 20130716
  Receipt Date: 20130716
  Transmission Date: 20140515
  Serious: Yes (Disabling, Other)
  Sender: FDA-Public Use
  Company Number: IT-009507513-1307ITA005572

PATIENT
  Age: 59 Year
  Sex: Female

DRUGS (1)
  1. FOSAVANCE [Suspect]
     Indication: OSTEOPOROSIS
     Dosage: 1 POSOLOGICAL UNIT, ORAL WEEKLY
     Route: 048
     Dates: start: 20020502, end: 20120502

REACTIONS (1)
  - Femur fracture [Recovered/Resolved with Sequelae]
